FAERS Safety Report 10224183 (Version 1)
Quarter: 2014Q1

REPORT INFORMATION
  Report Type: Spontaneous
  Country: US (occurrence: None)
  Receive Date: 20140306
  Receipt Date: 20140306
  Transmission Date: 20141002
  Serious: Yes (Other)
  Sender: FDA-Public Use
  Company Number: 163-21880-13093256

PATIENT
  Age: 60 Year
  Sex: Female
  Weight: 63.05 kg

DRUGS (38)
  1. CILOXAN (CIPROFLOXACIN HYDROCHLORIDE) (EYE DROPS) [Concomitant]
  2. CITALOPRAM (CITALOPRAM) (TABLETS) [Concomitant]
  3. DIPHENHYDRAMINE (DIPHENHYDRAMINE) (TABLETS) [Concomitant]
  4. DULCOLAX (BISACODYL) (TABLETS) [Concomitant]
  5. DURAGESIC (FENTANYL) (POULTICE OR PATCH) [Concomitant]
  6. FOLIC ACID (FOLIC ACID) (TABLETS) [Concomitant]
  7. GABAPENTIN ER (GABAPENTIN) (TABLETS) [Concomitant]
  8. HECTOROL (DOXERCALCIFEROL) (CAPSULES) [Concomitant]
  9. HYDRALAZINE (HYDRALAZINE) (TABLETS) [Concomitant]
  10. ISONIAZID (ISONIAZID) (TABLETS) [Concomitant]
  11. MEGACE (MEGESTROL ACETATE) (SUSPENSION) [Concomitant]
  12. MELOXICAM (MELOXICAM) (TABLETS) [Concomitant]
  13. METOCLOPRAMIDE (METOCLOPRAMIDE) (TABLETS) [Concomitant]
  14. METOPROLOL TARTRATE (METOPROLOL TARTRATE) (TABLETS) (METOPROLOL TARTRATE) [Concomitant]
  15. NORTRIPTYLINE (NORTRIPTYLINE) (CAPSULES) [Concomitant]
  16. OMEPRAZOLE (OMEPRAZOLE) (CAPSULES) [Concomitant]
  17. OXYCODONE/ACETAMINOPHEN (OXYCOCET) (TABLETS) [Concomitant]
  18. PANTOPRAZOLE (PANTOPRAZOLE) (SUSPENSION) [Concomitant]
  19. PHOSLO (CALCIUM ACETATE) (CAPSULES) [Concomitant]
  20. PROCHLORPERAZINE MALEATE (PROCHLORPERAZINE MALEATE) (TABLETS) [Concomitant]
  21. VITAMIN B6 (PYRIDOXINE HYDROCHLORIDE) (UNKNOWN) [Concomitant]
  22. ZOFRAN ODT (ONDANSETRON HYDROCHLORIDE) (TABLETS) [Concomitant]
  23. CIPRO (CIPROFLOXACIN) (TABLETS) [Concomitant]
  24. VELCADE (BORTEZOMIB) (UNKNOWN) [Concomitant]
  25. AREDIA (PAMIDRONATE DISODIUM) (UNKNOWN) [Concomitant]
  26. REVLIMID (LENALIDOMIDE) (5 MILLIGRAM, CAPSULES) [Suspect]
     Indication: PLASMA CELL MYELOMA
     Route: 048
     Dates: start: 201108
  27. DECADRON (DEXAMETHASONE) (UNKNOWN) [Concomitant]
  28. AUGMENTIN [Concomitant]
  29. LEVAQUIN (LEVOFLOXACIN) (TABLETS) [Concomitant]
  30. NEUPOGEN (FILGRASTIM) (UNKNOWN) [Concomitant]
  31. OXCARBAZEPINE (OXCARBAZEPINE) (TABLETS) [Concomitant]
  32. VP-ZEL (VITAMINS WITH MINERALS) (TABLETS) [Concomitant]
  33. ALPRAZOLAM (ALPRAZOLAM) (TABLETS) [Concomitant]
  34. AMLODIPINE (AMLODIPINE) (TABLETS) [Concomitant]
  35. ATARAX (HYDROXYZINE HYDROCHLORIDE) (TABLETS) [Concomitant]
  36. B COMPLEX VITAMINS (BECOSYM FORTE) (TABLETS) [Concomitant]
  37. CALCIUM (CALCUM) (TABLETS) [Concomitant]
  38. CEPHALEXIN (CEFALEXIN) (TABLETS) [Concomitant]

REACTIONS (1)
  - Pancytopenia [None]
